FAERS Safety Report 8819031 (Version 2)
Quarter: 2013Q2

REPORT INFORMATION
  Report Type: Spontaneous
  Country: FR (occurrence: FR)
  Receive Date: 20121001
  Receipt Date: 20130618
  Transmission Date: 20140414
  Serious: Yes (Other)
  Sender: FDA-Public Use
  Company Number: FR-JNJFOC-20120911570

PATIENT
  Age: 39 Year
  Sex: Male

DRUGS (8)
  1. REMICADE [Suspect]
     Indication: SPONDYLOARTHROPATHY
     Dosage: 4TH INFUSION
     Route: 042
  2. REMICADE [Suspect]
     Indication: SPONDYLOARTHROPATHY
     Dosage: 1ST INFUSION
     Route: 042
  3. REMICADE [Suspect]
     Indication: SPONDYLOARTHROPATHY
     Route: 042
     Dates: start: 20130610
  4. REMICADE [Suspect]
     Indication: SPONDYLOARTHROPATHY
     Route: 042
     Dates: start: 20120809
  5. HYDROCORTISONE [Suspect]
     Indication: PRODUCT USED FOR UNKNOWN INDICATION
     Route: 065
  6. ANTIHISTAMINES [Concomitant]
     Indication: PREMEDICATION
     Route: 065
  7. REMICADE [Suspect]
     Indication: SPONDYLOARTHROPATHY
     Dosage: 3RD INFUSION
     Route: 042
  8. REMICADE [Suspect]
     Indication: SPONDYLOARTHROPATHY
     Dosage: 2ND INFUSION
     Route: 042

REACTIONS (8)
  - Ocular hyperaemia [Unknown]
  - Infusion related reaction [Unknown]
  - Feeling hot [Unknown]
  - Dyspnoea [Unknown]
  - Chest discomfort [Recovered/Resolved]
  - Flushing [Recovered/Resolved]
  - Generalised erythema [Recovered/Resolved]
  - Adverse event [Unknown]
